FAERS Safety Report 8168509-5 (Version None)
Quarter: 2012Q1

REPORT INFORMATION
  Report Type: 
  Country: None (occurrence: None)
  Receive Date: 20120227
  Receipt Date: 20120227
  Transmission Date: 20120608
  Serious: Yes (Hospitalization, Other)
  Sender: FDA-Public Use
  Company Number: None

PATIENT
  Sex: Male
  Weight: 98.9 kg

DRUGS (2)
  1. GABAPENTIN [Suspect]
     Indication: POST HERPETIC NEURALGIA
     Dosage: 100.0 MG
     Route: 048
     Dates: start: 20110720, end: 20120130
  2. GABAPENTIN [Suspect]
     Indication: HERPES ZOSTER
     Dosage: 100.0 MG
     Route: 048
     Dates: start: 20110720, end: 20120130

REACTIONS (1)
  - MYASTHENIA GRAVIS [None]
